FAERS Safety Report 11343555 (Version 1)
Quarter: 2015Q3

REPORT INFORMATION
  Report Type: Spontaneous
  Country: US (occurrence: None)
  Receive Date: 20150629
  Receipt Date: 20150629
  Transmission Date: 20151125
  Serious: No
  Sender: FDA-Public Use
  Company Number: A-NJ2014-95829

PATIENT
  Age: 67 Year
  Sex: Male

DRUGS (2)
  1. OPSUMIT [Suspect]
     Active Substance: MACITENTAN
     Indication: PULMONARY ARTERIAL HYPERTENSION
     Route: 048
     Dates: start: 20140221, end: 20140224
  2. SILDENAFIL. [Concomitant]
     Active Substance: SILDENAFIL

REACTIONS (3)
  - Malaise [None]
  - Hypoxia [None]
  - Condition aggravated [None]
